FAERS Safety Report 25197765 (Version 1)
Quarter: 2025Q2

REPORT INFORMATION
  Report Type: Spontaneous
  Country: US (occurrence: US)
  Receive Date: 20250415
  Receipt Date: 20250415
  Transmission Date: 20250717
  Serious: No
  Sender: ABBVIE
  Company Number: US-ABBVIE-6226878

PATIENT
  Age: 70 Year
  Sex: Female
  Weight: 68 kg

DRUGS (3)
  1. HUMIRA [Suspect]
     Active Substance: ADALIMUMAB
     Indication: Rheumatoid arthritis
     Route: 058
     Dates: start: 2017
  2. DIOVAN [Concomitant]
     Active Substance: VALSARTAN
     Indication: Blood pressure measurement
  3. THYROXINE [Concomitant]
     Active Substance: LEVOTHYROXINE
     Indication: Thyroid disorder

REACTIONS (5)
  - Asthenia [Recovered/Resolved]
  - Drug ineffective [Recovered/Resolved]
  - Illness [Recovered/Resolved]
  - Nasopharyngitis [Recovered/Resolved]
  - Immunodeficiency [Recovered/Resolved]
